FAERS Safety Report 7867423-X (Version None)
Quarter: 2011Q4

REPORT INFORMATION
  Report Type: 
  Country: None (occurrence: None)
  Receive Date: 20111028
  Receipt Date: 20111024
  Transmission Date: 20120403
  Serious: Yes (Death)
  Sender: FDA-Public Use
  Company Number: US-MERCK-1110USA03620

PATIENT
  Sex: Male

DRUGS (2)
  1. ISENTRESS [Suspect]
     Route: 048
     Dates: start: 20090101, end: 20090101
  2. ABACAVIR SULFATE [Concomitant]
     Route: 065

REACTIONS (4)
  - RASH [None]
  - MYALGIA [None]
  - PYREXIA [None]
  - RENAL FAILURE [None]
